FAERS Safety Report 4629372-X (Version None)
Quarter: 2005Q2

REPORT INFORMATION
  Report Type: 
  Country: None (occurrence: None)
  Receive Date: 20050405
  Receipt Date: 20050323
  Transmission Date: 20051028
  Serious: Yes (Life-Threatening, Other)
  Sender: FDA-Public Use
  Company Number: HQWYE344324MAR05

PATIENT
  Age: 52 Year
  Sex: Female

DRUGS (1)
  1. INDERAL [Suspect]
     Indication: MIGRAINE
     Dosage: 80 MG 1X PER 1 DAY ORAL
     Route: 048
     Dates: start: 20050117, end: 20050206

REACTIONS (1)
  - NARCOLEPSY [None]
